FAERS Safety Report 16714873 (Version 1)
Quarter: 2019Q3

REPORT INFORMATION
  Report Type: Spontaneous
  Country: GB (occurrence: GB)
  Receive Date: 20190819
  Receipt Date: 20190819
  Transmission Date: 20191005
  Serious: Yes (Disabling, Other)
  Sender: FDA-Public Use
  Company Number: GB-TAKEDA-2019TEU009744

PATIENT
  Age: 72 Year
  Sex: Male
  Weight: 81 kg

DRUGS (12)
  1. POTASSIUM BICARBONATE W/SODIUM ALGINATE [Concomitant]
     Indication: DYSPEPSIA
     Dosage: 10 MILLILITER, QD
     Dates: start: 20190502
  2. GAVISCON ADVANCE [Concomitant]
     Active Substance: POTASSIUM BICARBONATE\SODIUM ALGINATE
     Dosage: 10 MILLILITER, QD
     Dates: start: 20190402, end: 20190502
  3. ACIDEX                             /01521901/ [Concomitant]
     Active Substance: CALCIUM CARBONATE\SODIUM ALGINATE\SODIUM BICARBONATE
     Dosage: 40 MILLILITER, QD
     Dates: start: 20160616, end: 20190402
  4. FEBUXOSTAT. [Concomitant]
     Active Substance: FEBUXOSTAT
     Dosage: UNK UNK, QD
     Dates: start: 20170904
  5. COLCHICINE. [Concomitant]
     Active Substance: COLCHICINE
     Dosage: UNK UNK, QD
     Dates: start: 20181108
  6. LANSOPRAZOLE. [Suspect]
     Active Substance: LANSOPRAZOLE
     Indication: GASTROOESOPHAGEAL REFLUX DISEASE
     Dosage: 15 MILLIGRAM, QD
     Route: 065
     Dates: start: 20190314, end: 20190411
  7. RANITIDINE. [Concomitant]
     Active Substance: RANITIDINE
     Indication: DYSPEPSIA
     Dosage: UNK UNK, QD
     Dates: start: 20190326
  8. BETAMETHASONE VALERATE. [Concomitant]
     Active Substance: BETAMETHASONE VALERATE
     Indication: RASH
     Dosage: UNK
     Dates: start: 20190121, end: 20190402
  9. FULTIUM D3 [Concomitant]
     Active Substance: CHOLECALCIFEROL
     Dosage: UNK UNK, QD
     Dates: start: 20170621
  10. ATORVASTATIN [Concomitant]
     Active Substance: ATORVASTATIN
     Dosage: UNK UNK, QD
     Dates: start: 20170717
  11. FELODIPINE. [Concomitant]
     Active Substance: FELODIPINE
     Dosage: UNK UNK, QD
     Dates: start: 20170717
  12. APIXABAN [Concomitant]
     Active Substance: APIXABAN
     Dosage: UNK UNK, QD
     Dates: start: 20181203

REACTIONS (3)
  - Lip swelling [Recovered/Resolved]
  - Pruritus generalised [Recovered/Resolved]
  - Vomiting [Recovered/Resolved]

NARRATIVE: CASE EVENT DATE: 20190514
